FAERS Safety Report 5909151-3 (Version None)
Quarter: 2008Q4

REPORT INFORMATION
  Report Type: 
  Country: None (occurrence: None)
  Receive Date: 20081006
  Receipt Date: 20080924
  Transmission Date: 20090506
  Serious: Yes (Other)
  Sender: FDA-Public Use
  Company Number: US-PFIZER INC-2008082727

PATIENT
  Sex: Female
  Weight: 104.54 kg

DRUGS (12)
  1. CHANTIX [Suspect]
     Dates: start: 20070101
  2. METFORMIN HCL [Concomitant]
     Indication: DIABETES MELLITUS
  3. LASIX [Concomitant]
  4. FUROSEMIDE [Concomitant]
  5. TRAZODONE HCL [Concomitant]
  6. ALLERGY MEDICATION [Concomitant]
  7. SINGULAIR ^DIECKMANN^ [Concomitant]
  8. KLOR-CON [Concomitant]
  9. ACETYLSALICYLIC ACID SRT [Concomitant]
  10. LISINOPRIL [Concomitant]
     Indication: HYPERTENSION
  11. LIPITOR [Concomitant]
     Indication: BLOOD CHOLESTEROL INCREASED
  12. ANTIDEPRESSANTS [Concomitant]
     Indication: MAJOR DEPRESSION

REACTIONS (2)
  - BLOOD GLUCOSE INCREASED [None]
  - DEPRESSION [None]
